FAERS Safety Report 4913008-4 (Version None)
Quarter: 2006Q1

REPORT INFORMATION
  Report Type: 
  Country: None (occurrence: None)
  Receive Date: 20060210
  Receipt Date: 20060128
  Transmission Date: 20060701
  Serious: Yes (Hospitalization)
  Sender: FDA-Public Use
  Company Number: 2005132699

PATIENT
  Age: 59 Year
  Sex: Male

DRUGS (1)
  1. LIPITOR [Suspect]
     Indication: COGNITIVE DISORDER
     Dosage: 80 MG (DAILY), ORAL
     Route: 048
     Dates: start: 20050506

REACTIONS (9)
  - AMNESIA [None]
  - COGNITIVE DISORDER [None]
  - CONDITION AGGRAVATED [None]
  - DYSPHAGIA [None]
  - FATIGUE [None]
  - HYPERSOMNIA [None]
  - LOW DENSITY LIPOPROTEIN DECREASED [None]
  - POSTURE ABNORMAL [None]
  - SPEECH DISORDER [None]
